FAERS Safety Report 6103531-1 (Version None)
Quarter: 2009Q1

REPORT INFORMATION
  Report Type: 
  Country: None (occurrence: None)
  Receive Date: 20090227
  Receipt Date: 20090213
  Transmission Date: 20090719
  Serious: Yes (Other)
  Sender: FDA-Public Use
  Company Number: AVE_00278_2009

PATIENT
  Sex: Male
  Weight: 71.2147 kg

DRUGS (16)
  1. NICOTINE TRANSDERMAL SYSTEM 7 MG [Suspect]
     Indication: SMOKING CESSATION THERAPY
     Dosage: (7 MG QD TRANSDERMAL)
     Route: 062
     Dates: start: 20090131, end: 20090131
  2. NITROGLYCERIN [Concomitant]
  3. NITROGLYCERIN [Concomitant]
  4. NITROGLYCERIN [Concomitant]
  5. SIMVASTATIN [Concomitant]
  6. ASPIRIN [Concomitant]
  7. EZETROL [Concomitant]
  8. NORVASC [Concomitant]
  9. EXELON [Concomitant]
  10. PLAVIX [Concomitant]
  11. CLOBAZAM [Concomitant]
  12. SERTRALINE [Concomitant]
  13. CARBAMAZEPINE [Concomitant]
  14. QUETIAPINE FUMARATE [Concomitant]
  15. METOPROLOL TARTRATE [Concomitant]
  16. ADVAIR HFA [Concomitant]

REACTIONS (1)
  - ANGINA PECTORIS [None]
